FAERS Safety Report 16882909 (Version 1)
Quarter: 2019Q4

REPORT INFORMATION
  Report Type: Spontaneous
  Country: US (occurrence: US)
  Receive Date: 20191004
  Receipt Date: 20191004
  Transmission Date: 20200122
  Serious: Yes (Other)
  Sender: FDA-Public Use
  Company Number: US-ROCHE-2390575

PATIENT
  Sex: Female

DRUGS (2)
  1. XOLAIR [Suspect]
     Active Substance: OMALIZUMAB
     Indication: ASTHMA
     Dosage: FORM STRENGTH: 150 MG/ ML
     Route: 058
     Dates: start: 20170117
  2. XOLAIR [Suspect]
     Active Substance: OMALIZUMAB
     Dosage: FORM STRENGTH: 150 MG/ ML
     Route: 058
     Dates: start: 20190516

REACTIONS (3)
  - Diabetes mellitus [Not Recovered/Not Resolved]
  - Visual impairment [Unknown]
  - Blood glucose increased [Unknown]
